FAERS Safety Report 12738145 (Version 1)
Quarter: 2016Q3

REPORT INFORMATION
  Report Type: Spontaneous
  Country: US (occurrence: US)
  Receive Date: 20160912
  Receipt Date: 20160912
  Transmission Date: 20161109
  Serious: No
  Sender: FDA-Public Use
  Company Number: US-SA-2016SA122153

PATIENT
  Age: 80 Year
  Sex: Male

DRUGS (2)
  1. TOUJEO [Suspect]
     Active Substance: INSULIN GLARGINE
     Indication: TYPE 2 DIABETES MELLITUS
     Dosage: DOSE:50 UNIT(S)
     Route: 065
  2. SOLOSTAR [Concomitant]
     Active Substance: DEVICE

REACTIONS (6)
  - Musculoskeletal pain [Unknown]
  - Headache [Unknown]
  - Feeling jittery [Unknown]
  - Arthritis [Unknown]
  - Blood glucose increased [Unknown]
  - Tremor [Unknown]
